FAERS Safety Report 19425674 (Version 4)
Quarter: 2025Q1

REPORT INFORMATION
  Report Type: Spontaneous
  Country: US (occurrence: US)
  Receive Date: 20210616
  Receipt Date: 20250131
  Transmission Date: 20250408
  Serious: Yes (Death, Other)
  Sender: PFIZER
  Company Number: US-PFIZER INC-2021314497

PATIENT
  Age: 84 Year
  Sex: Female

DRUGS (11)
  1. IBRANCE [Suspect]
     Active Substance: PALBOCICLIB
     Route: 048
     Dates: start: 202102
  2. IBRANCE [Suspect]
     Active Substance: PALBOCICLIB
     Route: 048
     Dates: start: 20210311, end: 20250126
  3. AMLODIPINE [Concomitant]
     Active Substance: AMLODIPINE BESYLATE
  4. BACLOFEN [Concomitant]
     Active Substance: BACLOFEN
  5. FASLODEX [Concomitant]
     Active Substance: FULVESTRANT
  6. LISINOPRIL [Concomitant]
     Active Substance: LISINOPRIL
  7. METOPROLOL [Concomitant]
     Active Substance: METOPROLOL
  8. NORCO [Concomitant]
     Active Substance: ACETAMINOPHEN\HYDROCODONE BITARTRATE
  9. PYRIDOXINE [Concomitant]
     Active Substance: PYRIDOXINE
  10. VITAMIN B12 [Concomitant]
     Active Substance: CYANOCOBALAMIN
  11. ZOFRAN [Concomitant]
     Active Substance: ONDANSETRON HYDROCHLORIDE

REACTIONS (4)
  - Pyrexia [Fatal]
  - Dyspnoea [Fatal]
  - Dental operation [Recovered/Resolved]
  - Musculoskeletal discomfort [Unknown]

NARRATIVE: CASE EVENT DATE: 20210101
